FAERS Safety Report 25563393 (Version 1)
Quarter: 2025Q3

REPORT INFORMATION
  Report Type: Other
  Country: US (occurrence: US)
  Receive Date: 20250716
  Receipt Date: 20250716
  Transmission Date: 20251020
  Serious: Yes (Hospitalization)
  Sender: APPCO PHARMA LLC
  Company Number: US-Appco Pharma LLC-2180598

PATIENT
  Sex: Male

DRUGS (7)
  1. HALOPERIDOL [Suspect]
     Active Substance: HALOPERIDOL
     Indication: Antipsychotic therapy
  2. LORAZEPAM [Suspect]
     Active Substance: LORAZEPAM
  3. LYSERGIDE [Concomitant]
     Active Substance: LYSERGIDE
  4. OLANZAPINE [Suspect]
     Active Substance: OLANZAPINE
  5. BUPROPION [Suspect]
     Active Substance: BUPROPION
  6. CARBAMAZEPINE [Suspect]
     Active Substance: CARBAMAZEPINE
  7. GUANFACINE [Suspect]
     Active Substance: GUANFACINE

REACTIONS (1)
  - Paroxysmal perceptual alteration [Unknown]
